FAERS Safety Report 17639038 (Version 2)
Quarter: 2020Q2

REPORT INFORMATION
  Report Type: Report from Study
  Country: NO (occurrence: NO)
  Receive Date: 20200407
  Receipt Date: 20200410
  Transmission Date: 20200713
  Serious: Yes (Death, Other)
  Sender: FDA-Public Use
  Company Number: NO-PFIZER INC-1012146

PATIENT

DRUGS (5)
  1. DOXORUBICIN HCL [Suspect]
     Active Substance: DOXORUBICIN HYDROCHLORIDE
     Indication: OSTEOSARCOMA
     Dosage: 75 MG/M2, CYCLIC 75 MG/M^2, 2 CYCLES-PRE-OPERATIVELY, 3 CYCLES POST-OPERATIVELY
     Route: 041
  2. CISPLATIN. [Suspect]
     Active Substance: CISPLATIN
     Indication: OSTEOSARCOMA
     Dosage: 90 MG/M2, CYCLIC 90 MG/M^2, 2 CYCLES- PRE-OPERATIVELY, 3 CYCLES POST-OPERATIVELY
     Route: 041
  3. CALCIUM FOLINATE [Concomitant]
     Active Substance: LEUCOVORIN CALCIUM
     Indication: SALVAGE THERAPY
     Dosage: 8 MG/M2, 4X/DAY (EVERY SIXTH HOUR)
     Route: 041
  4. METHOTREXATE SODIUM. [Suspect]
     Active Substance: METHOTREXATE SODIUM
     Indication: OSTEOSARCOMA
     Dosage: UNK, CYCLIC 12 G/M^2, 2 CYCLES-PRE-OPERATIVELY, 3 CYCLES POST-OPERATIVELY
     Route: 041
  5. G-CSF [Concomitant]
     Active Substance: GRANULOCYTE COLONY-STIMULATING FACTOR NOS
     Dosage: UNK

REACTIONS (2)
  - Sepsis [Fatal]
  - Colitis [Fatal]
